FAERS Safety Report 23919009 (Version 1)
Quarter: 2024Q2

REPORT INFORMATION
  Report Type: Spontaneous
  Country: BG (occurrence: BG)
  Receive Date: 20240530
  Receipt Date: 20240530
  Transmission Date: 20240716
  Serious: Yes (Hospitalization, Other)
  Sender: FDA-Public Use
  Company Number: BG-BBM-BG-BBM-202401570

PATIENT
  Age: 4 Year
  Sex: Male

DRUGS (26)
  1. IBUPROFEN [Suspect]
     Active Substance: IBUPROFEN
     Indication: Pyrexia
     Dosage: ADMINISTERED 10 DAYS BEFORE THE APPEARANCE OF RASH
     Route: 065
  2. IBUPROFEN [Suspect]
     Active Substance: IBUPROFEN
     Indication: Cough
  3. TEICOPLANIN [Suspect]
     Active Substance: TEICOPLANIN
     Indication: Product used for unknown indication
     Dosage: 150 MILLIGRAM, BID (ADMINISTERED AT BURNS DEPARTMENT OF UMHAT PIROGOV)
     Route: 065
  4. BISEPTOL [Suspect]
     Active Substance: SULFAMETHOXAZOLE\TRIMETHOPRIM
     Indication: Upper respiratory tract infection
     Dosage: ADMINISTERED 1 MONTH BEFORE THE APPEARANCE OF THE RASH
     Route: 065
  5. ACETAMINOPHEN [Suspect]
     Active Substance: ACETAMINOPHEN
     Indication: Pyrexia
     Dosage: ADMINISTERED 10 DAYS BEFORE THE APPEARANCE OF RASH
     Route: 065
  6. ACETAMINOPHEN [Suspect]
     Active Substance: ACETAMINOPHEN
     Indication: Cough
     Dosage: CONCENTRATION 120MG/5MLADMINISTERED IN INFECTIOUS DISEASES HOSPITAL
     Route: 065
  7. ACETAMINOPHEN [Suspect]
     Active Substance: ACETAMINOPHEN
     Dosage: PRN TOOK AS NEEDED B BURN DEPART DESPITE ANAMNESTIC DATA POINTING MEDICATION POTENTIAL CAUSE DISEAS
     Route: 065
  8. ACETAMINOPHEN [Suspect]
     Active Substance: ACETAMINOPHEN
     Indication: Product used for unknown indication
     Dosage: 150 MILLIGRAM (ADMINISTRED BY THE EMERGENCY SERVICE)
     Route: 030
  9. KETALAR [Concomitant]
     Active Substance: KETAMINE HYDROCHLORIDE
     Indication: Sedative therapy
     Dosage: ADMINISTERED AT BURNS DEPARTMENT OF UMHAT PIROGOV
     Route: 065
  10. METHYLPREDNISOLONE [Concomitant]
     Active Substance: METHYLPREDNISOLONE
     Indication: Upper respiratory tract infection
     Dosage: 20 MILLIGRAM (ADMINISTERED AT EMERGENCY SERVICE)
     Route: 030
  11. METHYLPREDNISOLONE [Concomitant]
     Active Substance: METHYLPREDNISOLONE
     Dosage: 20 MILLIGRAM, BID (ADMINISTERED AT BURNS DEPARTMENT OF UMHAT PIROGOV)
     Route: 030
  12. METHYLPREDNISOLONE [Concomitant]
     Active Substance: METHYLPREDNISOLONE
     Dosage: 20 MILLIGRAM (ADMINISTERED AT INFECTIOUS DISEASES HOSPITAL)
     Route: 030
  13. ELECTROLYTES NOS [Concomitant]
     Active Substance: ELECTROLYTES NOS
     Dosage: UNK
     Route: 065
  14. Glucodex [Concomitant]
     Dosage: 500 MILLILITER (ADMINISTERED AT BURNS DEPARTMENT OF UMHAT PIROGOV)
     Route: 065
  15. OFLOXACIN [Concomitant]
     Active Substance: OFLOXACIN
     Dosage: 4X1 DROP IN THE EYESADMINISTERED AT BURNS DEPARTMENT OF UMHAT PIROGOV
     Route: 065
  16. OFLOXACIN [Concomitant]
     Active Substance: OFLOXACIN
     Dosage: OINTMENT 2 TIMES A DAY FOR THE EYESADMINISTERED AT BURNS DEPARTMENT OF UMHAT PIROGOV
     Route: 065
  17. FAMOTIDINE [Concomitant]
     Active Substance: FAMOTIDINE
     Dosage: 10 MILLIGRAM, BID (ADMINSITERED AT BURNS DEPARTMENT OF UMHAT PIROGOV)
     Route: 065
  18. ACETYLCYSTEINE [Concomitant]
     Active Substance: ACETYLCYSTEINE
     Dosage: 400 MILLIGRAM, BID (ADMINISTERED AT BURNS DEPARTMENT OF UMHAT PIROGOV)
     Route: 065
  19. POTASSIUM CHLORIDE [Concomitant]
     Active Substance: POTASSIUM CHLORIDE
     Dosage: 5 MILLILITER (ADMINISTERED AT BURNS DEPARTMENT OF UMHAT PIROGOV)
     Route: 065
  20. LEVOCETIRIZINE DIHYDROCHLORIDE [Concomitant]
     Active Substance: LEVOCETIRIZINE DIHYDROCHLORIDE
     Dosage: UNK
     Route: 065
  21. VITAMIN C [Concomitant]
     Active Substance: ASCORBIC ACID
     Dosage: 2X3CCADMINISTERED AT BURNS DEPARTMENT OF UMHAT PIROGOV
     Route: 065
  22. ALBUMIN HUMAN [Concomitant]
     Active Substance: ALBUMIN HUMAN
     Dosage: 100 MILLILITER (ADMINISTERED AT BURNS DEPARTMENT OF UMHAT PIROGOV)
     Route: 065
  23. FUROSEMIDE [Concomitant]
     Active Substance: FUROSEMIDE
     Dosage: 5 MILLIGRAM (ADMINSITERED AT BURNS DEPARTMENT OF UMHAT PIROGOV)
     Route: 065
  24. AMINO ACIDS, SOURCE UNSPECIFIED [Concomitant]
     Active Substance: AMINO ACIDS, SOURCE UNSPECIFIED
     Dosage: 200 MILLILITER (ADMINISTERED AT BURNS DEPARTMENT OF UMHAT PIROGOV)
     Route: 065
  25. DIMETHINDENE MALEATE [Concomitant]
     Active Substance: DIMETHINDENE MALEATE
     Dosage: 3X13GTTADMINSITERED AT BURNS DEPARTMENT OF UMHAT PIROGOV
     Route: 065
  26. NYSTATIN [Concomitant]
     Active Substance: NYSTATIN
     Dosage: 500000 INTERNATIONAL UNIT
     Route: 065

REACTIONS (3)
  - Toxic epidermal necrolysis [Recovered/Resolved]
  - Condition aggravated [Recovered/Resolved]
  - Off label use [Recovered/Resolved]
